FAERS Safety Report 12655150 (Version 1)
Quarter: 2016Q3

REPORT INFORMATION
  Report Type: Spontaneous
  Country: US (occurrence: US)
  Receive Date: 20160816
  Receipt Date: 20160816
  Transmission Date: 20161109
  Serious: Yes (Other)
  Sender: FDA-Public Use
  Company Number: US-BRISTOL-MYERS SQUIBB COMPANY-BMS-2016-066207

PATIENT
  Sex: Male

DRUGS (1)
  1. ORENCIA [Suspect]
     Active Substance: ABATACEPT
     Indication: PRODUCT USED FOR UNKNOWN INDICATION
     Dosage: 750 MG, UNK
     Route: 042
     Dates: start: 20160726, end: 20160726

REACTIONS (6)
  - Rash generalised [Recovered/Resolved]
  - Hypertension [Recovered/Resolved]
  - Pruritus generalised [Recovered/Resolved]
  - Throat irritation [Recovered/Resolved]
  - Heart rate irregular [Recovered/Resolved]
  - Cough [Recovered/Resolved]
